FAERS Safety Report 7962730-4 (Version None)
Quarter: 2011Q4

REPORT INFORMATION
  Report Type: 
  Country: None (occurrence: None)
  Receive Date: 20111207
  Receipt Date: 20111124
  Transmission Date: 20120403
  Serious: Yes (Hospitalization, Other)
  Sender: FDA-Public Use
  Company Number: PHHY2011FR103538

PATIENT
  Sex: Female
  Weight: 62 kg

DRUGS (4)
  1. AMARYL [Concomitant]
     Dosage: 2 MG, UNK
  2. GLUCOPHAGE [Concomitant]
     Dosage: 500 MG 2DF DAILY
  3. AFINITOR [Suspect]
     Indication: RENAL CELL CARCINOMA
     Dosage: 10 MG, UNK
     Route: 048
     Dates: start: 20110301, end: 20110801
  4. LEXOMIL [Concomitant]

REACTIONS (6)
  - LYMPHOCYTE COUNT INCREASED [None]
  - COUGH [None]
  - PULMONARY CONGESTION [None]
  - RESPIRATORY DISORDER [None]
  - PNEUMOCYSTIS JIROVECI PNEUMONIA [None]
  - PYREXIA [None]
